FAERS Safety Report 9455620 (Version 1)
Quarter: 2013Q3

REPORT INFORMATION
  Report Type: Spontaneous
  Country: US (occurrence: US)
  Receive Date: 20130813
  Receipt Date: 20130813
  Transmission Date: 20140515
  Serious: Yes (Other)
  Sender: FDA-Public Use
  Company Number: US-ASTELLAS-2013US008297

PATIENT
  Age: 60 Year
  Sex: Male

DRUGS (1)
  1. PROGRAF [Suspect]
     Indication: RENAL TRANSPLANT
     Dosage: 5 MG IN MORNING; 4 MG IN EVENING
     Route: 048
     Dates: start: 20081016

REACTIONS (1)
  - Intracranial aneurysm [Unknown]
